FAERS Safety Report 5362415-7 (Version None)
Quarter: 2007Q2

REPORT INFORMATION
  Report Type: 
  Country: None (occurrence: None)
  Receive Date: 20070619
  Receipt Date: 20070608
  Transmission Date: 20071010
  Serious: Yes (Hospitalization, Disabling)
  Sender: FDA-Public Use
  Company Number: GB-BAUSCH-2007BL001863

PATIENT
  Age: 15 Year
  Sex: Female
  Weight: 49 kg

DRUGS (6)
  1. DEXAMETHASONE SODIUM PHOSPHATE [Suspect]
     Indication: ACUTE LYMPHOCYTIC LEUKAEMIA
     Route: 048
     Dates: start: 20040418
  2. VINCRISTINE [Suspect]
     Indication: ACUTE LYMPHOCYTIC LEUKAEMIA
     Route: 042
     Dates: start: 20040818
  3. CO-TRIMOXAZOLE [Concomitant]
     Indication: PROPHYLAXIS
     Route: 048
     Dates: start: 20040818
  4. FLUCONAZOLE [Concomitant]
     Indication: PROPHYLAXIS
     Route: 048
  5. MERCAPTOPURINE [Concomitant]
     Indication: ACUTE LYMPHOCYTIC LEUKAEMIA
     Route: 048
     Dates: start: 20051005
  6. METHOTREXATE [Concomitant]
     Indication: ACUTE LYMPHOCYTIC LEUKAEMIA
     Route: 037
     Dates: start: 20040418

REACTIONS (5)
  - FUNGAL INFECTION [None]
  - GAIT DISTURBANCE [None]
  - OSTEONECROSIS [None]
  - PAIN IN EXTREMITY [None]
  - PERONEAL NERVE PALSY [None]
